FAERS Safety Report 14685427 (Version 9)
Quarter: 2021Q3

REPORT INFORMATION
  Report Type: Report from Study
  Country: US (occurrence: US)
  Receive Date: 20180327
  Receipt Date: 20210726
  Transmission Date: 20211014
  Serious: Yes (Other)
  Sender: FDA-Public Use
  Company Number: PHEH2018US011236

PATIENT
  Sex: Female

DRUGS (1)
  1. COSENTYX [Suspect]
     Active Substance: SECUKINUMAB
     Indication: PSORIASIS
     Dosage: UNK
     Route: 065

REACTIONS (9)
  - Musculoskeletal stiffness [Unknown]
  - Injury [Unknown]
  - Limb discomfort [Unknown]
  - Drug ineffective [Unknown]
  - Psoriasis [Recovering/Resolving]
  - Arthritis [Unknown]
  - Influenza like illness [Unknown]
  - Diabetes mellitus [Unknown]
  - Pain [Unknown]
